FAERS Safety Report 10064119 (Version 2)
Quarter: 2014Q2

REPORT INFORMATION
  Report Type: Spontaneous
  Country: US (occurrence: US)
  Receive Date: 20140408
  Receipt Date: 20140521
  Transmission Date: 20141212
  Serious: Yes (Other)
  Sender: FDA-Public Use
  Company Number: US-PFIZER INC-2014094087

PATIENT
  Age: 64 Year
  Sex: Female
  Weight: 77.1 kg

DRUGS (10)
  1. JANUVIA [Concomitant]
  2. FUROSEMIDE [Concomitant]
  3. LISINOPRIL [Concomitant]
     Dosage: UNK
  4. APIDRA [Concomitant]
     Dosage: UNK
  5. LYRICA [Suspect]
     Indication: PAIN
     Dosage: 75 MG, 2X/DAY
     Route: 048
  6. CHANTIX [Suspect]
     Dosage: 0.5 MG, DAILY
  7. CHANTIX [Suspect]
     Dosage: 0.5 MG, 2X/DAY
  8. CHANTIX [Suspect]
     Dosage: 1 MG, 2X/DAY
  9. LANTUS [Concomitant]
     Dosage: UNK
  10. NEXIUM [Concomitant]

REACTIONS (1)
  - Lower limb fracture [Unknown]
